FAERS Safety Report 7644052-4 (Version None)
Quarter: 2011Q3

REPORT INFORMATION
  Report Type: 
  Country: None (occurrence: None)
  Receive Date: 20110729
  Receipt Date: 20110725
  Transmission Date: 20111222
  Serious: Yes (Other)
  Sender: FDA-Public Use
  Company Number: BR-BRISTOL-MYERS SQUIBB COMPANY-15932098

PATIENT
  Age: 12 Year
  Sex: Male
  Weight: 64 kg

DRUGS (4)
  1. ABILIFY [Suspect]
     Indication: SCHIZOPHRENIA
     Dosage: INITIALLY START WITH 5MG DAILY.1 TABLET OF 15 MG ORAL DAILY
     Route: 048
     Dates: start: 20110101
  2. OLCADIL [Concomitant]
  3. NEULEPTIL [Concomitant]
  4. RISPERIDONE [Concomitant]

REACTIONS (2)
  - SCHIZOPHRENIA [None]
  - WEIGHT INCREASED [None]
